FAERS Safety Report 7413626-8 (Version None)
Quarter: 2011Q2

REPORT INFORMATION
  Report Type: 
  Country: None (occurrence: None)
  Receive Date: 20110413
  Receipt Date: 20110328
  Transmission Date: 20111010
  Serious: Yes (Hospitalization)
  Sender: FDA-Public Use
  Company Number: DE-BAYER-2011-026495

PATIENT
  Age: 69 Year
  Sex: Male
  Weight: 100 kg

DRUGS (10)
  1. FUROSEMID [Concomitant]
     Indication: OEDEMA
     Dosage: DAILY DOSE 80 MG
     Route: 048
  2. BLINDED SORAFENIB (RAF KINASE INHIBITOR) [Suspect]
     Dosage: DAILY DOSE 800 MG
     Route: 048
     Dates: start: 20110306, end: 20110323
  3. HUMAN INSULIN [Concomitant]
     Indication: DIABETES MELLITUS
     Dosage: 14 IU, TID (14-14-14)
  4. BELOC ZOK [Concomitant]
     Indication: CARDIAC FAILURE
     Route: 048
  5. FUROSEMID [Concomitant]
     Indication: HYPERTENSION
  6. SYMBICORT [Concomitant]
     Indication: CHRONIC OBSTRUCTIVE PULMONARY DISEASE
     Dosage: DAILY DOSE 1 PUFF
     Route: 048
  7. ASPIRIN [Concomitant]
     Indication: PROPHYLAXIS
     Dosage: DAILY DOSE 100 MG
     Route: 048
  8. PRIMOVIST [Suspect]
  9. SIMVASTATIN [Concomitant]
     Indication: HYPERCHOLESTEROLAEMIA
     Dosage: DAILY DOSE 40 MG
     Route: 048
  10. PROTAPHANE [Concomitant]
     Indication: DIABETES MELLITUS
     Dosage: 16 IU, BID (16-0-0-16)

REACTIONS (4)
  - DIARRHOEA [None]
  - JOINT SWELLING [None]
  - ARTHRALGIA [None]
  - FATIGUE [None]
